FAERS Safety Report 8616034-7 (Version None)
Quarter: 2012Q3

REPORT INFORMATION
  Report Type: 
  Country: None (occurrence: None)
  Receive Date: 20120823
  Receipt Date: 20120516
  Transmission Date: 20120928
  Serious: No
  Sender: FDA-Public Use
  Company Number: US-PFIZER INC-2012197410

PATIENT
  Age: 29 Year
  Sex: Female

DRUGS (8)
  1. IBUPROFEN [Suspect]
     Indication: PAIN
     Dosage: 600 MG, 3X/DAY
     Route: 048
  2. TOPAMAX [Suspect]
     Indication: GRAND MAL CONVULSION
     Dosage: 100 MG, 3X/DAY
     Route: 048
     Dates: start: 20050101, end: 20070101
  3. TOPAMAX [Suspect]
     Indication: EPILEPSY
     Dosage: UNK, TWICE DAILY
     Route: 048
     Dates: start: 20070111
  4. TOPAMAX [Suspect]
     Dosage: 200 MG, 1X/DAY
     Route: 048
     Dates: start: 20070116, end: 20070701
  5. MIRALAX [Suspect]
     Dosage: UNK
  6. FLEXERIL [Suspect]
     Dosage: 10 MG, 1X/DAY (AT HOUR OF SLEEP)
     Route: 048
  7. ZANTAC [Suspect]
     Dosage: 150 MG, 2X/DAY
     Route: 048
  8. FOLIC ACID [Concomitant]
     Dosage: 1 MG, 1X/DAY
     Route: 048

REACTIONS (1)
  - EMOTIONAL DISORDER [None]
